FAERS Safety Report 10182389 (Version 2)
Quarter: 2014Q2

REPORT INFORMATION
  Report Type: Spontaneous
  Country: US (occurrence: US)
  Receive Date: 20140520
  Receipt Date: 20140521
  Transmission Date: 20141212
  Serious: No
  Sender: FDA-Public Use
  Company Number: US-009507513-1405USA008761

PATIENT
  Sex: 0
  Weight: 62.13 kg

DRUGS (3)
  1. NEXPLANON [Suspect]
     Dosage: 68 MG/ONE ROD EVERY THREE YEARS
     Route: 059
     Dates: start: 20140514, end: 20140514
  2. NEXPLANON [Suspect]
     Dosage: 68 MG/ONE ROD EVERY THREE YEARS
     Route: 059
     Dates: start: 20140514, end: 20140514
  3. NEXPLANON [Suspect]
     Dosage: ROD
     Route: 059
     Dates: start: 20140514

REACTIONS (2)
  - Device difficult to use [Unknown]
  - No adverse event [Unknown]
